FAERS Safety Report 18793039 (Version 1)
Quarter: 2021Q1

REPORT INFORMATION
  Report Type: Other
  Country: CA (occurrence: CA)
  Receive Date: 20210127
  Receipt Date: 20210127
  Transmission Date: 20210419
  Serious: Yes (Other)
  Sender: FDA-Public Use
  Company Number: CA-APOTEX-2021AP001507

PATIENT
  Age: 77 Year
  Sex: Female

DRUGS (1)
  1. RANITIDINE. [Suspect]
     Active Substance: RANITIDINE
     Indication: DYSPEPSIA
     Dosage: 150 MILLIGRAM, Q.12H
     Route: 048

REACTIONS (4)
  - Diarrhoea [Unknown]
  - Coeliac disease [Unknown]
  - Expired product administered [Unknown]
  - Illness [Unknown]
